FAERS Safety Report 5055566-8 (Version None)
Quarter: 2006Q3

REPORT INFORMATION
  Report Type: 
  Country: None (occurrence: None)
  Receive Date: 20060714
  Receipt Date: 20060710
  Transmission Date: 20061208
  Serious: Yes (Other)
  Sender: FDA-Public Use
  Company Number: 232654K05USA

PATIENT
  Age: 27 Year
  Sex: Female

DRUGS (2)
  1. REBIF [Suspect]
     Indication: MULTIPLE SCLEROSIS
     Dosage: 44 MCG, 3 IN 1 WEEKS, SUBCUTANEOUS
     Route: 058
     Dates: start: 20031201
  2. ORTHO-CYCLEN (CILEST) [Concomitant]

REACTIONS (11)
  - CONVULSION [None]
  - DEHYDRATION [None]
  - DYSKINESIA [None]
  - ELECTROENCEPHALOGRAM ABNORMAL [None]
  - EYE ROLLING [None]
  - LOSS OF CONSCIOUSNESS [None]
  - MUSCLE TWITCHING [None]
  - NUCLEAR MAGNETIC RESONANCE IMAGING BRAIN ABNORMAL [None]
  - PARTIAL SEIZURES [None]
  - TONGUE BITING [None]
  - TREMOR [None]
